FAERS Safety Report 8025786-9 (Version None)
Quarter: 2012Q1

REPORT INFORMATION
  Report Type: 
  Country: None (occurrence: None)
  Receive Date: 20120105
  Receipt Date: 20110830
  Transmission Date: 20120608
  Serious: No
  Sender: FDA-Public Use
  Company Number: US-ABBOTT-11P-163-0850492-00

PATIENT
  Sex: Female

DRUGS (4)
  1. CYTOMEL [Concomitant]
     Indication: PRODUCT USED FOR UNKNOWN INDICATION
  2. SYNTHROID [Suspect]
     Indication: HYPOTHYROIDISM
     Dates: end: 20110101
  3. SYNTHROID [Suspect]
     Dates: start: 20110101
  4. TRAZODONE HCL [Concomitant]
     Indication: PRODUCT USED FOR UNKNOWN INDICATION

REACTIONS (8)
  - NAUSEA [None]
  - PRODUCT COLOUR ISSUE [None]
  - WITHDRAWAL SYNDROME [None]
  - ALOPECIA [None]
  - DRUG INEFFECTIVE [None]
  - FATIGUE [None]
  - DRUG TOLERANCE DECREASED [None]
  - HEADACHE [None]
